FAERS Safety Report 17129618 (Version 2)
Quarter: 2019Q4

REPORT INFORMATION
  Report Type: Report from Study
  Country: US (occurrence: US)
  Receive Date: 20191209
  Receipt Date: 20191217
  Transmission Date: 20200122
  Serious: Yes (Other)
  Sender: FDA-Public Use
  Company Number: US-ROCHE-2491137

PATIENT
  Sex: Female
  Weight: 79.45 kg

DRUGS (1)
  1. OCREVUS [Suspect]
     Active Substance: OCRELIZUMAB
     Indication: MULTIPLE SCLEROSIS
     Dosage: NEXT DATES OF ADMINISTRATION: 28/NOV/2018, 15/MAY/2019, 03/OCT/2019?ONGOING: NO
     Route: 042
     Dates: start: 20181109

REACTIONS (3)
  - Herpes zoster [Unknown]
  - Stomatitis [Unknown]
  - Drug ineffective [Unknown]
